FAERS Safety Report 7060648-5 (Version None)
Quarter: 2010Q4

REPORT INFORMATION
  Report Type: 
  Country: None (occurrence: None)
  Receive Date: 20101025
  Receipt Date: 20101013
  Transmission Date: 20110411
  Serious: Yes (Death)
  Sender: FDA-Public Use
  Company Number: JP-ROCHE-734541

PATIENT
  Age: 21 Year
  Sex: Female
  Weight: 38 kg

DRUGS (4)
  1. CELLCEPT [Suspect]
     Indication: PROPHYLAXIS AGAINST TRANSPLANT REJECTION
     Dosage: NOTE: DOSAGE IS UNCERTAIN.
     Route: 048
  2. SIMULECT [Concomitant]
     Dosage: ROUTE: INTRAVENOUS (NOT OTHERWISE SPECIFIED),NOTE: DOSAGE IS UNCERTAIN.
     Route: 042
  3. ADRENAL COMPLEX [Concomitant]
     Dosage: DOSE FORM: UNCERTAINTY,NOTE: DOSAGE IS UNCERTAIN.
     Route: 065
  4. ADRENAL COMPLEX [Concomitant]
     Dosage: DOSE FORM: UNCERTAINTY,NOTE: DOSAGE IS UNCERTAIN.
     Route: 065

REACTIONS (7)
  - HEPATIC FUNCTION ABNORMAL [None]
  - HYDROCEPHALUS [None]
  - INTRAVENTRICULAR HAEMORRHAGE [None]
  - PNEUMOTHORAX [None]
  - RENAL IMPAIRMENT [None]
  - SEPSIS [None]
  - SUBDURAL HAEMATOMA [None]
